FAERS Safety Report 9706262 (Version 2)
Quarter: 2013Q4

REPORT INFORMATION
  Report Type: Spontaneous
  Country: GB (occurrence: GB)
  Receive Date: 20131125
  Receipt Date: 20131127
  Transmission Date: 20140711
  Serious: Yes (Hospitalization)
  Sender: FDA-Public Use
  Company Number: GB-009507513-1311GBR008877

PATIENT
  Age: 60 Year
  Sex: Male
  Weight: 79.8 kg

DRUGS (8)
  1. NITROGLYCERIN [Suspect]
     Indication: CHEST PAIN
     Dosage: 2 DF, UNK
     Route: 060
     Dates: start: 20131105
  2. ASPIRIN [Concomitant]
     Dosage: 75 MG, UNK
     Route: 048
  3. ATORVASTATIN [Concomitant]
     Dosage: 40 MG, UNK
     Route: 048
  4. BENDROFLUMETHIAZIDE [Concomitant]
     Dosage: 2.5 MG, UNK
     Route: 048
  5. CLOPIDOGREL [Concomitant]
     Dosage: 75 MG
     Route: 048
  6. DILTIAZEM HYDROCHLORIDE [Concomitant]
     Dosage: 60 MG, UNK
     Route: 048
  7. LOSARTAN POTASSIUM 25 MG FILM-COATED TABLETS [Concomitant]
     Dosage: 25 MG, UNK
     Route: 048
  8. OMEPRAZOLE [Concomitant]
     Dosage: 20 MG, UNK

REACTIONS (3)
  - Blood pressure immeasurable [Recovered/Resolved]
  - Unresponsive to stimuli [Recovered/Resolved]
  - Heart rate decreased [Recovered/Resolved]
